FAERS Safety Report 8392205-2 (Version None)
Quarter: 2012Q2

REPORT INFORMATION
  Report Type: 
  Country: None (occurrence: None)
  Receive Date: 20120529
  Receipt Date: 20120515
  Transmission Date: 20120825
  Serious: Yes (Death, Congenital Anomaly)
  Sender: FDA-Public Use
  Company Number: US-ROCHE-1072259

PATIENT
  Sex: Female

DRUGS (1)
  1. INVIRASE [Suspect]
     Indication: ANTIVIRAL TREATMENT
     Route: 064
     Dates: start: 20111207

REACTIONS (8)
  - TALIPES [None]
  - GAZE PALSY [None]
  - RESPIRATORY DISTRESS [None]
  - HEPATOSPLENOMEGALY [None]
  - MATERNAL EXPOSURE TIMING UNSPECIFIED [None]
  - CONGENITAL EYE DISORDER [None]
  - FINGER DEFORMITY [None]
  - TRISOMY 21 [None]
